FAERS Safety Report 7080556-3 (Version None)
Quarter: 2010Q4

REPORT INFORMATION
  Report Type: 
  Country: None (occurrence: None)
  Receive Date: 20101025
  Receipt Date: 20101007
  Transmission Date: 20110411
  Serious: Yes (Death)
  Sender: FDA-Public Use
  Company Number: 2010002619

PATIENT
  Age: 66 Year
  Sex: Male
  Weight: 78 kg

DRUGS (22)
  1. ERLOTINIB (ERLOTINIB) (TABLET) (ERLOTINIB) [Suspect]
     Indication: NON-SMALL CELL LUNG CANCER
     Dosage: 150 MG, QD, ORAL
     Route: 048
     Dates: start: 20091015, end: 20100601
  2. CP-751, 871 [Suspect]
     Indication: NON-SMALL CELL LUNG CANCER
     Dosage: 1560 MG, EVERY 3 WEEKS, INTRAVENOUS
     Route: 042
     Dates: start: 20091015, end: 20100514
  3. ATIVAN [Concomitant]
  4. VICODIN [Concomitant]
  5. AMOXICILLIN [Concomitant]
  6. ONDANSETRON [Concomitant]
  7. OMEPRAZOLE [Concomitant]
  8. CELEXA [Concomitant]
  9. NYSTATIN [Concomitant]
  10. PERIOSTAT [Concomitant]
  11. CHLORHEXIDINE GLUCONATE [Concomitant]
  12. SALBUTAMOL SULFATE [Concomitant]
  13. ANUSOL HC [Concomitant]
  14. BENZONATATE [Concomitant]
  15. ADVAIR DISKUS (SERETIDE MITE) [Concomitant]
  16. DUONEB [Concomitant]
  17. NORVASC [Concomitant]
  18. LISINOPRIL [Concomitant]
  19. ALLOPURINOL [Concomitant]
  20. ATENOLOL [Concomitant]
  21. CIMETIDINE [Concomitant]
  22. GAVISCON [Concomitant]

REACTIONS (4)
  - CARDIAC ARREST [None]
  - DEPRESSION [None]
  - DISEASE PROGRESSION [None]
  - TOOTH DISORDER [None]
